FAERS Safety Report 6342946-3 (Version None)
Quarter: 2009Q3

REPORT INFORMATION
  Report Type: 
  Country: None (occurrence: None)
  Receive Date: 20090908
  Receipt Date: 20090903
  Transmission Date: 20100115
  Serious: Yes (Hospitalization)
  Sender: FDA-Public Use
  Company Number: FR-WYE-G04362609

PATIENT
  Sex: Male
  Weight: 15 kg

DRUGS (2)
  1. ADVIL [Suspect]
     Indication: PHARYNGITIS
     Dosage: UNKNOWN
     Route: 048
     Dates: start: 20090707, end: 20090708
  2. DOLIPRANE [Concomitant]
     Dosage: UNKNOWN
     Route: 048
     Dates: start: 20090707, end: 20090708

REACTIONS (2)
  - ABSCESS NECK [None]
  - CONDITION AGGRAVATED [None]
